FAERS Safety Report 10164667 (Version 1)
Quarter: 2014Q2

REPORT INFORMATION
  Report Type: Spontaneous
  Country: US (occurrence: US)
  Receive Date: 20140510
  Receipt Date: 20140510
  Transmission Date: 20141212
  Serious: No
  Sender: FDA-Public Use
  Company Number: US-BRISTOL-MYERS SQUIBB COMPANY-20339370

PATIENT
  Age: 77 Year
  Sex: Male

DRUGS (1)
  1. BYETTA [Suspect]
     Indication: DIABETES MELLITUS
     Dosage: DURATION: 5 TO 7 YRS

REACTIONS (4)
  - Therapeutic response decreased [Unknown]
  - Contusion [Unknown]
  - Weight decreased [Unknown]
  - Injection site pain [Unknown]
